FAERS Safety Report 17127288 (Version 2)
Quarter: 2019Q4

REPORT INFORMATION
  Report Type: Spontaneous
  Country: JP (occurrence: JP)
  Receive Date: 20191209
  Receipt Date: 20191226
  Transmission Date: 20200122
  Serious: Yes (Hospitalization)
  Sender: FDA-Public Use
  Company Number: JP-ELI_LILLY_AND_COMPANY-JP201911012538

PATIENT
  Age: 65 Year
  Sex: Male

DRUGS (1)
  1. HUMAN INSULIN 3/7 [Suspect]
     Active Substance: INSULIN HUMAN
     Indication: TYPE 2 DIABETES MELLITUS
     Dosage: UNK
     Route: 058

REACTIONS (2)
  - Diabetes mellitus inadequate control [Recovered/Resolved]
  - Cutaneous amyloidosis [Unknown]
